FAERS Safety Report 6795025-5 (Version None)
Quarter: 2010Q2

REPORT INFORMATION
  Report Type: 
  Country: None (occurrence: None)
  Receive Date: 20100625
  Receipt Date: 20100614
  Transmission Date: 20101027
  Serious: Yes (Hospitalization)
  Sender: FDA-Public Use
  Company Number: PHHY2010US39230

PATIENT
  Sex: Female

DRUGS (1)
  1. GLEEVEC [Suspect]
     Indication: CONGENITAL PIGMENTATION DISORDER
     Dosage: 100 MG, BID
     Route: 048
     Dates: start: 20100215

REACTIONS (1)
  - CARDIAC DISORDER [None]
